FAERS Safety Report 7558107-6 (Version None)
Quarter: 2011Q2

REPORT INFORMATION
  Report Type: 
  Country: None (occurrence: None)
  Receive Date: 20110525
  Receipt Date: 20110215
  Transmission Date: 20111010
  Serious: No
  Sender: FDA-Public Use
  Company Number: 323978

PATIENT
  Age: 70 Year
  Sex: Male

DRUGS (3)
  1. GLYBURIDE [Concomitant]
  2. METFORMIN HCL [Concomitant]
  3. VICTOZA [Suspect]
     Indication: TYPE 2 DIABETES MELLITUS
     Dosage: SUBCUTANEOUS
     Route: 058
     Dates: start: 20110101

REACTIONS (2)
  - BLOOD URIC ACID INCREASED [None]
  - DECREASED APPETITE [None]
